FAERS Safety Report 7966013-8 (Version None)
Quarter: 2011Q4

REPORT INFORMATION
  Report Type: 
  Country: None (occurrence: None)
  Receive Date: 20111208
  Receipt Date: 20111206
  Transmission Date: 20120403
  Serious: Yes (Death, Hospitalization)
  Sender: FDA-Public Use
  Company Number: AU-B.I. PHARMACEUTICALS,INC./RIDGEFIELD-2011-AU-00655AU

PATIENT
  Age: 91 Year
  Sex: Male
  Weight: 62 kg

DRUGS (6)
  1. ACETAMINOPHEN [Concomitant]
  2. PRADAXA [Suspect]
     Dosage: 220 MG
  3. ATENOLOL [Concomitant]
  4. NSAID [Concomitant]
  5. RAMIPRIL [Concomitant]
  6. TEMISARTAN [Concomitant]

REACTIONS (2)
  - MELAENA [None]
  - GASTROINTESTINAL HAEMORRHAGE [None]
